FAERS Safety Report 6906152-3 (Version None)
Quarter: 2010Q3

REPORT INFORMATION
  Report Type: 
  Country: None (occurrence: None)
  Receive Date: 20100803
  Receipt Date: 20100803
  Transmission Date: 20110219
  Serious: Yes (Other)
  Sender: FDA-Public Use
  Company Number: None

PATIENT
  Age: 26 Year
  Sex: Female
  Weight: 58.0604 kg

DRUGS (1)
  1. YAZ [Suspect]
     Dosage: 28 TBLETS 1 A DAY PO
     Route: 048
     Dates: start: 20071101, end: 20090901

REACTIONS (2)
  - GALLBLADDER NON-FUNCTIONING [None]
  - GASTRIC DISORDER [None]
